FAERS Safety Report 23715874 (Version 1)
Quarter: 2024Q2

REPORT INFORMATION
  Report Type: Spontaneous
  Country: DE (occurrence: DE)
  Receive Date: 20240408
  Receipt Date: 20240408
  Transmission Date: 20240716
  Serious: Yes (Hospitalization)
  Sender: FDA-Public Use
  Company Number: None

PATIENT
  Age: 40 Year
  Sex: Female

DRUGS (2)
  1. IBUPROFEN [Suspect]
     Active Substance: IBUPROFEN
     Indication: Product used for unknown indication
     Dosage: UNK
     Route: 065
  2. ACHILLEA MILLEFOLIUM\CHAMOMILE\OAK BARK EXTRACT\TARAXACUM OFFICINALE [Suspect]
     Active Substance: ACHILLEA MILLEFOLIUM\CHAMOMILE\OAK BARK EXTRACT\TARAXACUM OFFICINALE
     Indication: Product used for unknown indication
     Dosage: UNK
     Route: 065

REACTIONS (2)
  - Urticaria [Unknown]
  - Urticaria [Unknown]
